FAERS Safety Report 9865808 (Version 1)
Quarter: 2014Q1

REPORT INFORMATION
  Report Type: Spontaneous
  Country: US (occurrence: US)
  Receive Date: 20140203
  Receipt Date: 20140203
  Transmission Date: 20141002
  Serious: No
  Sender: FDA-Public Use
  Company Number: US-ALLERGAN-1311134US

PATIENT
  Age: 60 Year
  Sex: Female

DRUGS (6)
  1. RESTASIS [Suspect]
     Indication: DRY EYE
     Dosage: 2 GTT, BID
     Route: 047
  2. LASTACAFT [Concomitant]
     Indication: EYE PRURITUS
     Dosage: 2 GTT, QD
     Route: 047
  3. ALAWAY [Concomitant]
     Indication: PRODUCT USED FOR UNKNOWN INDICATION
  4. SYSTANE [Concomitant]
     Indication: PRODUCT USED FOR UNKNOWN INDICATION
  5. ZANTAC [Concomitant]
     Indication: GASTROOESOPHAGEAL REFLUX DISEASE
  6. ZYRTEC [Concomitant]
     Indication: EYE PRURITUS

REACTIONS (3)
  - Wrong technique in drug usage process [Unknown]
  - Eyelids pruritus [Not Recovered/Not Resolved]
  - Eye pruritus [Not Recovered/Not Resolved]
